FAERS Safety Report 8411183-0 (Version None)
Quarter: 2012Q2

REPORT INFORMATION
  Report Type: 
  Country: None (occurrence: None)
  Receive Date: 20120605
  Receipt Date: 20120502
  Transmission Date: 20120825
  Serious: No
  Sender: FDA-Public Use
  Company Number: US-AMGEN-USASP2012027760

PATIENT
  Age: 60 Year
  Sex: Male

DRUGS (3)
  1. ENBREL [Suspect]
     Indication: PRODUCT USED FOR UNKNOWN INDICATION
     Dosage: 50 MG, QWK
  2. PREDNISONE [Concomitant]
     Dosage: 1 MG, QD
  3. FOLIC ACID [Concomitant]
     Dosage: UNK

REACTIONS (2)
  - DYSPEPSIA [None]
  - VOMITING [None]
